FAERS Safety Report 9735257 (Version 1)
Quarter: 2013Q4

REPORT INFORMATION
  Report Type: Spontaneous
  Country: US (occurrence: None)
  Receive Date: 20131205
  Receipt Date: 20131205
  Transmission Date: 20140711
  Serious: Yes (Other)
  Sender: FDA-Public Use
  Company Number: None

PATIENT
  Age: 33 Year
  Sex: Female
  Weight: 42.18 kg

DRUGS (2)
  1. LIDOCAINE [Suspect]
     Indication: LOCAL ANAESTHESIA
     Dates: start: 20130729, end: 20130729
  2. LIDOCAINE [Suspect]
     Indication: BIOPSY
     Dates: start: 20130729, end: 20130729

REACTIONS (11)
  - Loss of consciousness [None]
  - Confusional state [None]
  - Hyperhidrosis [None]
  - Dysgeusia [None]
  - Hypotension [None]
  - Convulsion [None]
  - Dizziness [None]
  - Fatigue [None]
  - Slow speech [None]
  - Arrhythmia [None]
  - Unevaluable event [None]
